FAERS Safety Report 6157224-5 (Version None)
Quarter: 2009Q2

REPORT INFORMATION
  Report Type: 
  Country: None (occurrence: None)
  Receive Date: 20090416
  Receipt Date: 20090406
  Transmission Date: 20091009
  Serious: Yes (Other)
  Sender: FDA-Public Use
  Company Number: FR-BRISTOL-MYERS SQUIBB COMPANY-14576631

PATIENT
  Age: 37 Year
  Sex: Female

DRUGS (3)
  1. AMOXICILLIN [Suspect]
     Indication: LISTERIOSIS
     Route: 048
  2. AMIKACIN SULFATE [Suspect]
     Indication: LISTERIOSIS
     Route: 042
  3. AMOXICILLIN [Suspect]
     Indication: LISTERIOSIS
     Dosage: ALSO 6 G SIX TIMES DAILY DURING 3 DAYS
     Route: 042

REACTIONS (3)
  - DRUG INEFFECTIVE [None]
  - PREGNANCY [None]
  - PREMATURE LABOUR [None]
